FAERS Safety Report 6528717-3 (Version None)
Quarter: 2009Q4

REPORT INFORMATION
  Report Type: 
  Country: None (occurrence: None)
  Receive Date: 20091224
  Receipt Date: 20091217
  Transmission Date: 20100525
  Serious: Yes (Death, Hospitalization)
  Sender: FDA-Public Use
  Company Number: 2009SA009142

PATIENT
  Age: 68 Year
  Sex: Male

DRUGS (7)
  1. FLUDARA [Suspect]
     Indication: NON-HODGKIN'S LYMPHOMA
     Dosage: 50 MILLIGRAM(S) ;DAILY;ORAL
     Route: 048
     Dates: start: 20090218, end: 20090222
  2. FLUDARA [Suspect]
     Indication: NON-HODGKIN'S LYMPHOMA
     Dosage: 50 MILLIGRAM(S) ;DAILY;ORAL
     Route: 048
     Dates: start: 20090318, end: 20090322
  3. DOXORUBICIN HCL [Concomitant]
  4. VINCRISTINE [Concomitant]
  5. PREDNISOLONE [Concomitant]
  6. RITUXIMAB [Concomitant]
  7. CYCLOPHOSPHAMIDE [Concomitant]

REACTIONS (3)
  - MALIGNANT NEOPLASM PROGRESSION [None]
  - NON-HODGKIN'S LYMPHOMA [None]
  - OBLITERATIVE BRONCHIOLITIS [None]
